FAERS Safety Report 8916779 (Version 1)
Quarter: 2012Q4

REPORT INFORMATION
  Report Type: 
  Country: US (occurrence: US)
  Receive Date: 20121120
  Receipt Date: 20121120
  Transmission Date: 20130627
  Serious: No
  Sender: FDA-Public Use
  Company Number: US-PFIZER INC-2012286697

PATIENT
  Sex: Female

DRUGS (2)
  1. NORVASC [Suspect]
     Dosage: UNK
     Dates: start: 20091114
  2. NEURONTIN [Suspect]
     Dosage: UNK
     Dates: start: 20091114

REACTIONS (1)
  - Chronic obstructive pulmonary disease [Unknown]
